FAERS Safety Report 4704449-9 (Version None)
Quarter: 2005Q2

REPORT INFORMATION
  Report Type: 
  Country: None (occurrence: None)
  Receive Date: 20050628
  Receipt Date: 20050613
  Transmission Date: 20051028
  Serious: Yes (Other)
  Sender: FDA-Public Use
  Company Number: JP_050606800

PATIENT
  Age: 75 Year
  Sex: Female
  Weight: 54 kg

DRUGS (4)
  1. EVISTA [Suspect]
     Indication: OSTEOPOROSIS POSTMENOPAUSAL
     Dosage: 60 MG/1 DAY
     Route: 048
     Dates: start: 20040614, end: 20050517
  2. ROCALTROL [Concomitant]
     Route: 048
  3. ASPARA-CA                (ASPARTATE CALCIUM) [Concomitant]
     Dosage: 3 DF / DAY
     Route: 048
  4. LIPITOR [Concomitant]

REACTIONS (1)
  - RETINAL VEIN OCCLUSION [None]
